APPROVED DRUG PRODUCT: ATOMOXETINE HYDROCHLORIDE
Active Ingredient: ATOMOXETINE HYDROCHLORIDE
Strength: EQ 25MG BASE
Dosage Form/Route: CAPSULE;ORAL
Application: A079016 | Product #003 | TE Code: AB
Applicant: AUROBINDO PHARMA LTD
Approved: May 30, 2017 | RLD: No | RS: No | Type: RX